FAERS Safety Report 7168128-3 (Version None)
Quarter: 2010Q4

REPORT INFORMATION
  Report Type: 
  Country: None (occurrence: None)
  Receive Date: 20101216
  Receipt Date: 20101208
  Transmission Date: 20110411
  Serious: Yes (Hospitalization, Other)
  Sender: FDA-Public Use
  Company Number: US-B.I. PHARMACEUTICALS,INC./RIDGEFIELD-2010-DE-07007BY

PATIENT
  Age: 76 Year
  Sex: Female

DRUGS (3)
  1. TELMISARTAN AND HYDROCHLOROTHIAZIDE [Suspect]
     Indication: HYPERTENSION
     Route: 065
  2. FUROSEMIDE [Suspect]
     Indication: HYPERTENSION
     Route: 065
  3. TRIAMTERENE [Suspect]
     Indication: HYPERTENSION
     Route: 065

REACTIONS (4)
  - CONFUSIONAL STATE [None]
  - DISORIENTATION [None]
  - HYPONATRAEMIA [None]
  - STRESS CARDIOMYOPATHY [None]
